FAERS Safety Report 12420179 (Version 1)
Quarter: 2016Q2

REPORT INFORMATION
  Report Type: Spontaneous
  Country: DE (occurrence: DE)
  Receive Date: 20160531
  Receipt Date: 20160531
  Transmission Date: 20160815
  Serious: Yes (Other)
  Sender: FDA-Public Use
  Company Number: DE-TOLMAR, INC.-2016DE005138

PATIENT
  Sex: Male

DRUGS (2)
  1. ELIGARD [Suspect]
     Active Substance: LEUPROLIDE ACETATE
     Indication: PROSTATIC PAIN
     Dosage: UNK, Q3MONTHS
     Route: 065
     Dates: start: 20150107
  2. ELIGARD [Suspect]
     Active Substance: LEUPROLIDE ACETATE
     Indication: PROSTATIC PAIN
     Dosage: UNK
     Route: 065
     Dates: start: 2015

REACTIONS (10)
  - Urethral pain [Unknown]
  - Pruritus [Not Recovered/Not Resolved]
  - Tinnitus [Not Recovered/Not Resolved]
  - Prostatic pain [Unknown]
  - Dysphagia [Not Recovered/Not Resolved]
  - Rash [Not Recovered/Not Resolved]
  - Hot flush [Not Recovered/Not Resolved]
  - Infection [Unknown]
  - Ear discomfort [Not Recovered/Not Resolved]
  - Dry mouth [Not Recovered/Not Resolved]
